FAERS Safety Report 9319428 (Version 2)
Quarter: 2014Q2

REPORT INFORMATION
  Report Type: Spontaneous
  Country: US (occurrence: US)
  Receive Date: 20130530
  Receipt Date: 20140530
  Transmission Date: 20141212
  Serious: Yes (Hospitalization, Other)
  Sender: FDA-Public Use
  Company Number: US-GLAXOSMITHKLINE-A0979902A

PATIENT
  Age: 30 Year
  Sex: Female
  Weight: 70 kg

DRUGS (4)
  1. FLOLAN [Suspect]
     Indication: PRODUCT USED FOR UNKNOWN INDICATION
     Dosage: 32NGKM CONTINUOUS
     Route: 042
     Dates: start: 20080827
  2. COUMADIN [Concomitant]
  3. REVATIO [Concomitant]
  4. LASIX [Concomitant]

REACTIONS (1)
  - Device related infection [Recovered/Resolved]
